FAERS Safety Report 6009447-3 (Version None)
Quarter: 2008Q4

REPORT INFORMATION
  Report Type: 
  Country: None (occurrence: None)
  Receive Date: 20081217
  Receipt Date: 20080922
  Transmission Date: 20090506
  Serious: No
  Sender: FDA-Public Use
  Company Number: US-BAYER-200834434NA

PATIENT
  Age: 18 Year
  Sex: Female

DRUGS (1)
  1. YAZ [Suspect]
     Indication: ABDOMINAL PAIN
     Route: 048
     Dates: start: 20080801, end: 20080922

REACTIONS (4)
  - HEPATIC ENZYME INCREASED [None]
  - INFECTIOUS MONONUCLEOSIS [None]
  - METRORRHAGIA [None]
  - NO ADVERSE EVENT [None]
